FAERS Safety Report 16185463 (Version 1)
Quarter: 2019Q2

REPORT INFORMATION
  Report Type: Spontaneous
  Country: US (occurrence: US)
  Receive Date: 20190411
  Receipt Date: 20190411
  Transmission Date: 20190711
  Serious: No
  Sender: FDA-Public Use
  Company Number: US-PFIZER INC-2018311176

PATIENT
  Age: 48 Year
  Sex: Female

DRUGS (18)
  1. CYTOXAN [Concomitant]
     Active Substance: CYCLOPHOSPHAMIDE
     Indication: CHEMOTHERAPY
     Dosage: UNK
  2. TAXOTERE [Suspect]
     Active Substance: DOCETAXEL
     Indication: BREAST CANCER FEMALE
     Dosage: 178 MG, CYCLIC (4 CYCLES EVERY 3 WEEKS)
     Dates: start: 20121127, end: 20130131
  3. TAXOTERE [Suspect]
     Active Substance: DOCETAXEL
     Dosage: 174 MG, CYCLIC (4 CYCLES EVERY 3 WEEKS)
     Dates: start: 20121127, end: 20130131
  4. ZOCOR [Concomitant]
     Active Substance: SIMVASTATIN
     Dosage: UNK
     Dates: start: 2004
  5. DOCETAXEL. [Suspect]
     Active Substance: DOCETAXEL
     Dosage: 174 MG, CYCLIC (4 CYCLES EVERY 3 WEEKS)
     Dates: start: 20121127, end: 20130131
  6. DOXIL [Concomitant]
     Active Substance: DOXORUBICIN HYDROCHLORIDE
     Indication: CHEMOTHERAPY
     Dosage: UNK
  7. FUROSEMIDE. [Concomitant]
     Active Substance: FUROSEMIDE
     Dosage: UNK
  8. GABAPENTIN. [Concomitant]
     Active Substance: GABAPENTIN
     Dosage: UNK
  9. LOPRESSOR [Concomitant]
     Active Substance: METOPROLOL TARTRATE
     Dosage: UNK
     Dates: start: 2012
  10. ADRIAMYCIN [Concomitant]
     Active Substance: DOXORUBICIN HYDROCHLORIDE
     Indication: CHEMOTHERAPY
     Dosage: UNK
  11. LORTAB [Concomitant]
     Active Substance: ACETAMINOPHEN\HYDROCODONE BITARTRATE
     Dosage: UNK
     Dates: start: 2013, end: 2017
  12. DOCETAXEL. [Suspect]
     Active Substance: DOCETAXEL
     Indication: BREAST CANCER FEMALE
     Dosage: 178 MG, CYCLIC (4 CYCLES EVERY 3 WEEKS)
     Dates: start: 20121127, end: 20130131
  13. DOCETAXEL. [Suspect]
     Active Substance: DOCETAXEL
     Dosage: 176 MG, CYCLIC (4 CYCLES EVERY 3 WEEKS)
     Dates: start: 20121127, end: 20130131
  14. TAXOTERE [Suspect]
     Active Substance: DOCETAXEL
     Dosage: 176 MG, CYCLIC (4 CYCLES EVERY 3 WEEKS)
     Dates: start: 20121127, end: 20130131
  15. MAGNESIUM [Concomitant]
     Active Substance: MAGNESIUM
     Dosage: UNK
     Dates: start: 2007
  16. NEOSAR [Concomitant]
     Active Substance: CYCLOPHOSPHAMIDE
     Indication: CHEMOTHERAPY
     Dosage: UNK
  17. POTASSIUM [Concomitant]
     Active Substance: POTASSIUM
     Dosage: UNK
     Dates: start: 2007
  18. PRILOSEC [Concomitant]
     Active Substance: OMEPRAZOLE MAGNESIUM
     Dosage: UNK
     Dates: start: 2007

REACTIONS (5)
  - Hair texture abnormal [Not Recovered/Not Resolved]
  - Madarosis [Not Recovered/Not Resolved]
  - Hair disorder [Not Recovered/Not Resolved]
  - Hair colour changes [Not Recovered/Not Resolved]
  - Alopecia [Not Recovered/Not Resolved]

NARRATIVE: CASE EVENT DATE: 20130601
